FAERS Safety Report 8553412-9 (Version None)
Quarter: 2012Q3

REPORT INFORMATION
  Report Type: 
  Country: None (occurrence: None)
  Receive Date: 20120731
  Receipt Date: 20120716
  Transmission Date: 20120928
  Serious: Yes (Other)
  Sender: FDA-Public Use
  Company Number: CN-ASTRAZENECA-2012SE53631

PATIENT
  Sex: Female
  Weight: 64 kg

DRUGS (1)
  1. PLENDIL [Suspect]
     Indication: HYPERTENSION
     Route: 048
     Dates: start: 20071201, end: 20071202

REACTIONS (1)
  - ANAPHYLACTOID REACTION [None]
